FAERS Safety Report 8452515-7 (Version None)
Quarter: 2012Q2

REPORT INFORMATION
  Report Type: 
  Country: None (occurrence: None)
  Receive Date: 20120620
  Receipt Date: 20120413
  Transmission Date: 20120825
  Serious: No
  Sender: FDA-Public Use
  Company Number: US-VERTEX PHARMACEUTICALS INC.-AE-2012-005350

PATIENT
  Sex: Female
  Weight: 64.014 kg

DRUGS (4)
  1. INCIVEK [Suspect]
     Indication: HEPATITIS C
     Route: 048
     Dates: start: 20120224, end: 20120307
  2. RIBAVIRIN [Concomitant]
     Indication: HEPATITIS C
     Route: 048
     Dates: start: 20120224
  3. LIPITOR [Concomitant]
     Indication: BLOOD CHOLESTEROL
     Route: 048
  4. PEGASYS [Concomitant]
     Indication: HEPATITIS C
     Route: 058
     Dates: start: 20120224

REACTIONS (2)
  - VOMITING [None]
  - NAUSEA [None]
